FAERS Safety Report 8577875 (Version 2)
Quarter: 2013Q1

REPORT INFORMATION
  Report Type: Spontaneous
  Country: US (occurrence: None)
  Receive Date: 20120518
  Receipt Date: 20130212
  Transmission Date: 20140127
  Serious: Yes (Hospitalization, Other)
  Sender: FDA-Public Use
  Company Number: DKLU1079473

PATIENT
  Age: 43 Year
  Sex: Female
  Weight: 70.67 kg

DRUGS (14)
  1. SABRIL [Suspect]
     Indication: EPILEPSY
     Dosage: 1000 MG MILLIGRAM(S), 3 IN 1 D, ORAL 1500 MG MILLIGRAM(S), 3 IN 1 D, ORAL
     Route: 048
     Dates: start: 20120404
  2. SABRIL [Suspect]
     Indication: COMPLEX PARTIAL SEIZURES
     Dosage: 1000 MG MILLIGRAM(S), 3 IN 1 D, ORAL 1500 MG MILLIGRAM(S), 3 IN 1 D, ORAL
     Route: 048
     Dates: start: 20120404
  3. SABRIL [Suspect]
     Indication: EPILEPSY
     Dosage: 1000 MG MILLIGRAM(S), 3 IN 1 D, ORAL 1500 MG MILLIGRAM(S), 3 IN 1 D, ORAL
     Route: 048
     Dates: start: 20120404
  4. VIMPAT [Concomitant]
  5. TOPAMAX [Concomitant]
  6. ATIVAN [Concomitant]
  7. METHADONE HYDROCHLORIDE [Concomitant]
  8. SYNTHROID [Concomitant]
  9. DIAZEPAM (DIAZEPAM) [Concomitant]
  10. LAMICTAL XR (LAMOTRIGINE) [Concomitant]
  11. RITALIN [Suspect]
     Indication: COMPULSIONS
     Dates: end: 2012
  12. RITALIN [Suspect]
     Indication: ANXIETY
     Dates: end: 2012
  13. COFFEE [Suspect]
     Indication: COMPULSIONS
  14. COFFEE [Suspect]
     Indication: ANXIETY

REACTIONS (22)
  - Incorrect dose administered [None]
  - Product label issue [None]
  - Underdose [None]
  - Visual acuity reduced [None]
  - Attention deficit/hyperactivity disorder [None]
  - Condition aggravated [None]
  - Paranoia [None]
  - Anxiety [None]
  - Complex partial seizures [None]
  - Delusion [None]
  - Confusional state [None]
  - Balance disorder [None]
  - Hypoacusis [None]
  - Somnambulism [None]
  - Pollakiuria [None]
  - Abdominal discomfort [None]
  - Fall [None]
  - Depression [None]
  - Suicide attempt [None]
  - Renal failure acute [None]
  - Haemodialysis [None]
  - Pleural fibrosis [None]
